FAERS Safety Report 12964737 (Version 1)
Quarter: 2016Q4

REPORT INFORMATION
  Report Type: Spontaneous
  Country: CA (occurrence: CA)
  Receive Date: 20161122
  Receipt Date: 20161122
  Transmission Date: 20170207
  Serious: Yes (Death, Hospitalization)
  Sender: FDA-Public Use
  Company Number: CA-INGENUS PHARMACEUTICALS NJ, LLC-ING201611-000112

PATIENT
  Age: 5 Year
  Sex: Male
  Weight: 29 kg

DRUGS (2)
  1. ACETAMINOPHEN. [Concomitant]
     Active Substance: ACETAMINOPHEN
  2. CARISOPRODOL, ASPIRIN 90% AND CODEINE PHOSPHATE [Suspect]
     Active Substance: ASPIRIN\CARISOPRODOL\CODEINE PHOSPHATE

REACTIONS (2)
  - Toxicity to various agents [Fatal]
  - Death [Fatal]
